FAERS Safety Report 9086433 (Version 1)
Quarter: 2013Q1

REPORT INFORMATION
  Report Type: Spontaneous
  Country: BR (occurrence: BR)
  Receive Date: 20130131
  Receipt Date: 20130131
  Transmission Date: 20140127
  Serious: Yes (Hospitalization)
  Sender: FDA-Public Use
  Company Number: BR-PFIZER INC-2013036120

PATIENT
  Age: 73 Year
  Sex: Female

DRUGS (8)
  1. LIPITOR [Suspect]
     Indication: BLOOD CHOLESTEROL
     Dosage: 20 MG, 2X/DAY
     Route: 048
     Dates: start: 20120125
  2. ALDACTONE [Concomitant]
     Dosage: UNK
     Dates: start: 20120725
  3. CAPTOPRIL [Concomitant]
     Dosage: UNK
     Dates: start: 20120725
  4. CARDILOL [Concomitant]
     Dosage: 6.25, UNK UNK
     Dates: start: 20120725
  5. GLIFAGE [Concomitant]
     Dosage: 500, UNK UNK
     Dates: start: 20120725
  6. LASIX [Concomitant]
     Dosage: 40, UNK UNK
     Dates: start: 20120725
  7. TRAYENTA [Concomitant]
     Dosage: UNK
     Dates: start: 20120725
  8. ZIPROL [Concomitant]
     Dosage: UNK
     Dates: start: 20120725

REACTIONS (1)
  - Cardiac disorder [Recovering/Resolving]
